FAERS Safety Report 8392929-7 (Version None)
Quarter: 2012Q2

REPORT INFORMATION
  Report Type: 
  Country: None (occurrence: None)
  Receive Date: 20120529
  Receipt Date: 20120524
  Transmission Date: 20120825
  Serious: Yes (Other)
  Sender: FDA-Public Use
  Company Number: US-PFIZER INC-2012126485

PATIENT
  Sex: Female
  Weight: 80.726 kg

DRUGS (9)
  1. CELEBREX [Suspect]
  2. PREMARIN [Concomitant]
     Indication: HOT FLUSH
     Dosage: 0.3 MG, 1X/DAY
     Route: 048
  3. CELEBREX [Suspect]
     Indication: ARTHRITIS
     Dosage: 600 MG, 3X/DAY
     Route: 048
  4. VICODIN ES [Concomitant]
     Dosage: 750/7.5 MG, 4X/DAY
  5. POTASSIUM [Concomitant]
     Dosage: 20 MEQ, 1X/DAY
  6. NEURONTIN [Suspect]
     Indication: INTRASPINAL ABSCESS
     Dosage: 200 MG, 1X/DAY
     Route: 048
  7. FLEXERIL [Concomitant]
     Indication: MUSCLE SPASMS
     Dosage: 10 MG, 3X/DAY
  8. LASIX [Concomitant]
     Dosage: 20 MG, 1X/DAY
  9. PRAVASTATIN [Concomitant]
     Dosage: 40 MG, 2X/DAY

REACTIONS (2)
  - ARTHRALGIA [None]
  - ARTHRITIS [None]
